FAERS Safety Report 8130625-1 (Version None)
Quarter: 2012Q1

REPORT INFORMATION
  Report Type: 
  Country: None (occurrence: None)
  Receive Date: 20120213
  Receipt Date: 20120201
  Transmission Date: 20120608
  Serious: Yes (Hospitalization)
  Sender: FDA-Public Use
  Company Number: FR-BIOGENIDEC-2011BI048239

PATIENT
  Age: 32 Year
  Sex: Female

DRUGS (3)
  1. DEPAKOTE [Concomitant]
  2. CITALOPRAM HYDROBROMIDE [Concomitant]
  3. TYSABRI [Suspect]
     Indication: MULTIPLE SCLEROSIS
     Route: 042
     Dates: start: 20070725

REACTIONS (1)
  - INTERVERTEBRAL DISC PROTRUSION [None]
